FAERS Safety Report 10812051 (Version 1)
Quarter: 2015Q1

REPORT INFORMATION
  Report Type: Spontaneous
  Country: US (occurrence: None)
  Receive Date: 20150213
  Receipt Date: 20150213
  Transmission Date: 20150721
  Serious: Yes (Other)
  Sender: FDA-Public Use
  Company Number: None

PATIENT
  Age: 40 Year
  Sex: Female
  Weight: 56.7 kg

DRUGS (5)
  1. SYNTHROID [Concomitant]
     Active Substance: LEVOTHYROXINE SODIUM
  2. MULTIVITAMIN [Concomitant]
     Active Substance: VITAMINS
  3. BIOTIN [Concomitant]
     Active Substance: BIOTIN
  4. TERCONAZOLE 80 MG PERRIGO [Suspect]
     Active Substance: TERCONAZOLE
     Indication: VULVOVAGINAL MYCOTIC INFECTION
     Route: 067
     Dates: start: 20150210
  5. CALCIUM [Concomitant]
     Active Substance: CALCIUM

REACTIONS (1)
  - Pyrexia [None]

NARRATIVE: CASE EVENT DATE: 20150210
